FAERS Safety Report 4289392-4 (Version None)
Quarter: 2004Q1

REPORT INFORMATION
  Report Type: 
  Country: None (occurrence: None)
  Receive Date: 20040203
  Receipt Date: 20030908
  Transmission Date: 20041129
  Serious: Yes (Other)
  Sender: FDA-Public Use
  Company Number: 200323250BWH

PATIENT
  Age: 78 Year
  Sex: Female
  Weight: 108.8633 kg

DRUGS (8)
  1. AVELOX [Suspect]
     Indication: PNEUMONIA
     Dosage: 400 MG, QD, ORAL
     Route: 048
     Dates: start: 20030813, end: 20030815
  2. AVELOX [Suspect]
     Indication: SINUSITIS
     Dosage: 400 MG, QD, ORAL
     Route: 048
     Dates: start: 20030813, end: 20030815
  3. GLUCOTROL [Concomitant]
  4. ACTOS [Concomitant]
  5. DILTIAZEM [Concomitant]
  6. LEVOXYL [Concomitant]
  7. LASIX [Concomitant]
  8. CAPTOPRIL [Concomitant]

REACTIONS (4)
  - DYSPNOEA [None]
  - LEUKOPLAKIA ORAL [None]
  - ORAL CANDIDIASIS [None]
  - ORAL PAIN [None]
